FAERS Safety Report 4855373-2 (Version None)
Quarter: 2005Q4

REPORT INFORMATION
  Report Type: 
  Country: None (occurrence: None)
  Receive Date: 20051125
  Receipt Date: 20050531
  Transmission Date: 20060501
  Serious: No
  Sender: FDA-Public Use
  Company Number: ATO-05-0195

PATIENT
  Age: 79 Year
  Sex: Male

DRUGS (15)
  1. TRISENOX [Suspect]
     Indication: MYELODYSPLASTIC SYNDROME
     Dosage: 19 MG (0.25 MG/KG, 5 DOSE LOAD), IVI
     Dates: start: 20050516, end: 20050520
  2. CHLOROQUINE PHOSPHATE [Concomitant]
  3. DEMADEX [Concomitant]
  4. OXYCODONE [Concomitant]
  5. DESYREL [Concomitant]
  6. ARANESP [Concomitant]
  7. MEPROBAMATE [Concomitant]
  8. POTASSIUM [Concomitant]
  9. ALLOPURINOL [Concomitant]
  10. . [Concomitant]
  11. VITAMIN B6 [Concomitant]
  12. VITAMIN B-12 [Concomitant]
  13. THERAGRAM M [Concomitant]
  14. FOLIC ACID [Concomitant]
  15. NIACIN [Concomitant]

REACTIONS (3)
  - ALANINE AMINOTRANSFERASE INCREASED [None]
  - ASPARTATE AMINOTRANSFERASE INCREASED [None]
  - BLOOD ALKALINE PHOSPHATASE INCREASED [None]
